FAERS Safety Report 6462067-9 (Version None)
Quarter: 2009Q4

REPORT INFORMATION
  Report Type: 
  Country: None (occurrence: None)
  Receive Date: 20091130
  Receipt Date: 20091113
  Transmission Date: 20100525
  Serious: Yes (Other)
  Sender: FDA-Public Use
  Company Number: PHEH2009US16114

PATIENT
  Sex: Female

DRUGS (12)
  1. SANDOSTATIN [Suspect]
     Dosage: 700 MIC DAILY IV
     Route: 042
     Dates: start: 20090725, end: 20091004
  2. SIMVASTATIN [Concomitant]
  3. VIVELLE-DOT [Concomitant]
  4. HYDROCHLOROTHIAZIDE [Concomitant]
  5. ZANTAC [Concomitant]
  6. CALCITRIOL [Concomitant]
  7. COLECALCIFEROL [Concomitant]
  8. VITAMIN D [Concomitant]
  9. NEURONTIN [Concomitant]
  10. ZOFRAN [Concomitant]
  11. VITAMIN B-12 [Concomitant]
     Dosage: ONCE A WEEK
  12. TPN [Concomitant]
     Dosage: UNK
     Dates: start: 20090725, end: 20091004

REACTIONS (8)
  - BURNING SENSATION [None]
  - CONTUSION [None]
  - FALL [None]
  - GAIT DISTURBANCE [None]
  - HYPOAESTHESIA [None]
  - INCORRECT ROUTE OF DRUG ADMINISTRATION [None]
  - PAIN [None]
  - THROMBOSIS [None]
